FAERS Safety Report 8029304-0 (Version None)
Quarter: 2012Q1

REPORT INFORMATION
  Report Type: 
  Country: None (occurrence: None)
  Receive Date: 20120106
  Receipt Date: 20111228
  Transmission Date: 20120608
  Serious: Yes (Other)
  Sender: FDA-Public Use
  Company Number: US-VERTEX PHARMACEUTICALS INC.-AE-2011-005119

PATIENT
  Sex: Female

DRUGS (12)
  1. LEVOXYL [Concomitant]
  2. KLONOPIN [Concomitant]
  3. LAMICTAL [Concomitant]
  4. GABAPENTIN [Concomitant]
  5. INCIVEK [Suspect]
     Indication: HEPATITIS C
     Route: 048
     Dates: start: 20111106
  6. PEGASYS [Concomitant]
     Indication: HEPATITIS C
     Route: 058
     Dates: start: 20111106
  7. RIBAVIRIN [Concomitant]
     Indication: HEPATITIS C
     Route: 048
     Dates: start: 20111106
  8. COREG [Concomitant]
  9. XANAX [Concomitant]
  10. SEROQUEL [Concomitant]
  11. PRILOSEC [Concomitant]
  12. AMBIEN [Concomitant]

REACTIONS (4)
  - RED BLOOD CELL COUNT DECREASED [None]
  - ASTHENIA [None]
  - WHITE BLOOD CELL COUNT DECREASED [None]
  - FATIGUE [None]
